FAERS Safety Report 4841254-7 (Version None)
Quarter: 2005Q4

REPORT INFORMATION
  Report Type: 
  Country: None (occurrence: None)
  Receive Date: 20051130
  Receipt Date: 20051116
  Transmission Date: 20060501
  Serious: Yes (Death)
  Sender: FDA-Public Use
  Company Number: PHEH2005US12606

PATIENT
  Age: 77 Year
  Sex: Female

DRUGS (5)
  1. CLOZARIL [Suspect]
     Indication: SENILE DEMENTIA
     Dosage: 12.5 MG, QD
     Route: 048
     Dates: start: 20051101
  2. ARICEPT [Concomitant]
     Dosage: 10 MG, QHS
  3. MIRTAZAPINE [Concomitant]
     Dosage: 7.5 MG, QHS
  4. MILK OF MAGNESIA TAB [Concomitant]
     Dosage: UNK, PRN
  5. TYLENOL [Concomitant]
     Dosage: UNK, PRN

REACTIONS (3)
  - CHRONIC OBSTRUCTIVE PULMONARY DISEASE [None]
  - DEMENTIA [None]
  - WEIGHT DECREASED [None]
